FAERS Safety Report 8274382-7 (Version None)
Quarter: 2012Q2

REPORT INFORMATION
  Report Type: 
  Country: None (occurrence: None)
  Receive Date: 20120411
  Receipt Date: 20120405
  Transmission Date: 20120825
  Serious: Yes (Hospitalization)
  Sender: FDA-Public Use
  Company Number: FR-VALEANT-2012VX000721

PATIENT
  Age: 60 Year
  Sex: Female

DRUGS (9)
  1. KETOPROFEN [Suspect]
     Route: 042
     Dates: start: 20111216, end: 20111216
  2. PROSTIGMIN BROMIDE [Suspect]
     Indication: NEUROMUSCULAR BLOCKADE REVERSAL
     Route: 065
     Dates: start: 20111216, end: 20111216
  3. NIMBEX [Concomitant]
     Route: 042
  4. CHLORHEXIDINE GLUCONATE [Suspect]
     Route: 065
  5. PROPOFOL [Concomitant]
     Route: 042
     Dates: start: 20111216, end: 20111216
  6. ATROPINE [Suspect]
     Indication: ANAESTHESIA REVERSAL
     Route: 065
     Dates: start: 20111216, end: 20111216
  7. ULTIVA [Concomitant]
     Route: 042
  8. ACETAMINOPHEN [Concomitant]
     Route: 042
  9. TRAMADOL HCL [Concomitant]
     Route: 042
     Dates: start: 20111216, end: 20111216

REACTIONS (1)
  - ANAPHYLACTIC SHOCK [None]
